FAERS Safety Report 9893058 (Version 1)
Quarter: 2014Q1

REPORT INFORMATION
  Report Type: Report from Study
  Country: US (occurrence: US)
  Receive Date: 20140213
  Receipt Date: 20140213
  Transmission Date: 20141002
  Serious: Yes (Other)
  Sender: FDA-Public Use
  Company Number: US-ROCHE-1323854

PATIENT
  Age: 77 Year
  Sex: Male
  Weight: 78.5 kg

DRUGS (11)
  1. AVASTIN [Suspect]
     Indication: COLON CANCER
     Route: 042
     Dates: start: 20110915
  2. AVASTIN [Suspect]
     Indication: COLORECTAL CANCER
     Route: 042
     Dates: start: 20111208
  3. XELODA [Suspect]
     Indication: PRODUCT USED FOR UNKNOWN INDICATION
     Route: 065
  4. XGEVA [Concomitant]
     Route: 058
     Dates: start: 20110915
  5. DECADRON [Concomitant]
     Route: 042
     Dates: start: 20110915
  6. OXALIPLATIN [Concomitant]
     Route: 042
     Dates: start: 20111208
  7. OXALIPLATIN [Concomitant]
     Route: 042
     Dates: start: 20120521
  8. ZOFRAN [Concomitant]
     Route: 065
     Dates: start: 20111208
  9. CALCIUM GLUCONATE [Concomitant]
  10. MAGNESIUM SULFATE [Concomitant]
  11. COUMADIN [Concomitant]

REACTIONS (8)
  - Eye pruritus [Unknown]
  - Fatigue [Unknown]
  - Blood pressure increased [Unknown]
  - Anxiety [Unknown]
  - Hypertension [Unknown]
  - Rhinorrhoea [Unknown]
  - Paraesthesia [Unknown]
  - Cough [Unknown]
